FAERS Safety Report 8507083-8 (Version None)
Quarter: 2012Q3

REPORT INFORMATION
  Report Type: 
  Country: None (occurrence: None)
  Receive Date: 20120712
  Receipt Date: 20120705
  Transmission Date: 20120928
  Serious: Yes (Other)
  Sender: FDA-Public Use
  Company Number: US-FRI-1000036855

PATIENT
  Age: 80 Year
  Sex: Female

DRUGS (4)
  1. NAMENDA [Suspect]
     Dosage: 10 MG AM, 5 MG PM
     Route: 048
     Dates: start: 20120701
  2. COUMADIN [Concomitant]
     Indication: ATRIAL FIBRILLATION
  3. NAMENDA [Suspect]
     Indication: DEMENTIA ALZHEIMER'S TYPE
     Dosage: 5 MG
     Route: 048
     Dates: start: 20120101, end: 20120101
  4. NAMENDA [Suspect]
     Dosage: 5 MG BID
     Route: 048
     Dates: start: 20120101, end: 20120630

REACTIONS (2)
  - COGNITIVE DISORDER [None]
  - HALLUCINATION [None]
